FAERS Safety Report 4924505-X (Version None)
Quarter: 2006Q1

REPORT INFORMATION
  Report Type: 
  Country: None (occurrence: None)
  Receive Date: 20060222
  Receipt Date: 20060207
  Transmission Date: 20060701
  Serious: Yes (Death)
  Sender: FDA-Public Use
  Company Number: 2006-CZ-00619

PATIENT
  Sex: Female

DRUGS (4)
  1. PAXENE [Suspect]
     Dosage: 310 MG EVERY 3 WEEKS, CYCLICAL, INTRAVENOUS (NOT OTHERWISE SPECIFIED)
     Route: 042
     Dates: start: 20051221, end: 20060110
  2. CARBOPLATIN [Suspect]
     Indication: OVARIAN CANCER
     Dosage: 600 MG, EVERY 3 WEEKS, CYCLICAL, INTRAVENOUS (NOT OTHERWISE SPECIFIED)
     Route: 042
     Dates: start: 20051221, end: 20060110
  3. SALINE STERI-NEB (SODIUM CHLORIDE) [Suspect]
     Dosage: 500 MG, EVERY 3 WEEKS, CYCLICAL, INTRAVENOUS (NOT OTHERWISE SPECIFIED)
     Route: 042
     Dates: start: 20051221, end: 20060110
  4. GLUCOSE [Suspect]
     Dosage: 500 ML, EVERY 3 WEEKS, CYCLICAL, INTRAVENOUS (NOT OTHERWISE SPECIFIED)
     Route: 042
     Dates: start: 20051221, end: 20060110

REACTIONS (1)
  - MYOCARDIAL INFARCTION [None]
